FAERS Safety Report 6583092-3 (Version None)
Quarter: 2010Q1

REPORT INFORMATION
  Report Type: 
  Country: None (occurrence: None)
  Receive Date: 20100216
  Receipt Date: 20100212
  Transmission Date: 20100710
  Serious: Yes (Hospitalization)
  Sender: FDA-Public Use
  Company Number: BR-MERCK-1002BRA00053

PATIENT
  Age: 69 Year
  Sex: Female

DRUGS (2)
  1. MODURETIC 5-50 [Suspect]
     Route: 048
     Dates: start: 20000101, end: 20100201
  2. VASOTEC [Suspect]
     Route: 048
     Dates: start: 20000101, end: 20100201

REACTIONS (1)
  - BLOOD PRESSURE INCREASED [None]
